FAERS Safety Report 14911787 (Version 1)
Quarter: 2018Q2

REPORT INFORMATION
  Report Type: Spontaneous
  Country: US (occurrence: US)
  Receive Date: 20180518
  Receipt Date: 20180518
  Transmission Date: 20180711
  Serious: No
  Sender: FDA-Public Use
  Company Number: US-TAKEDA-2018MPI005707

PATIENT
  Sex: Male
  Weight: 102 kg

DRUGS (1)
  1. VELCADE [Suspect]
     Active Substance: BORTEZOMIB
     Indication: PLASMA CELL MYELOMA
     Dosage: 3.4 MG, 1/WEEK
     Route: 058
     Dates: start: 20180404, end: 20180515

REACTIONS (1)
  - Platelet count decreased [Unknown]
